FAERS Safety Report 8777758 (Version 2)
Quarter: 2012Q4

REPORT INFORMATION
  Report Type: 
  Country: JP (occurrence: JP)
  Receive Date: 20120912
  Receipt Date: 20120917
  Transmission Date: 20130627
  Serious: Yes (Hospitalization)
  Sender: FDA-Public Use
  Company Number: PHHY2012JP078726

PATIENT
  Age: 76 Year
  Sex: Female

DRUGS (1)
  1. NEORAL [Suspect]
     Indication: MUSCULOSKELETAL PAIN
     Route: 048

REACTIONS (2)
  - Cholelithiasis [Unknown]
  - Abdominal pain [Unknown]
